FAERS Safety Report 12571237 (Version 1)
Quarter: 2016Q3

REPORT INFORMATION
  Report Type: Report from Study
  Country: US (occurrence: US)
  Receive Date: 20160719
  Receipt Date: 20160719
  Transmission Date: 20161109
  Serious: Yes (Hospitalization)
  Sender: FDA-Public Use
  Company Number: US-BIOGEN-2016BI00265396

PATIENT
  Age: 59 Year
  Sex: Male

DRUGS (1)
  1. TECFIDERA [Suspect]
     Active Substance: DIMETHYL FUMARATE
     Indication: MULTIPLE SCLEROSIS
     Route: 048
     Dates: start: 20140814, end: 20160702

REACTIONS (6)
  - Diarrhoea [Not Recovered/Not Resolved]
  - Streptococcal infection [Unknown]
  - Gastrointestinal disorder [Recovered/Resolved]
  - Mobility decreased [Not Recovered/Not Resolved]
  - Clostridium difficile infection [Unknown]
  - Staphylococcal infection [Unknown]

NARRATIVE: CASE EVENT DATE: 2016
